FAERS Safety Report 18986510 (Version 9)
Quarter: 2021Q3

REPORT INFORMATION
  Report Type: Report from Study
  Country: AR (occurrence: AR)
  Receive Date: 20210309
  Receipt Date: 20210805
  Transmission Date: 20211014
  Serious: Yes (Other)
  Sender: FDA-Public Use
  Company Number: AR-AMGEN-ARGSL2021011545

PATIENT
  Age: 44 Year
  Sex: Male

DRUGS (1)
  1. VECTIBIX [Suspect]
     Active Substance: PANITUMUMAB
     Indication: COLORECTAL CANCER METASTATIC
     Dosage: UNK, Q2WK (EVERY 14 DAYS)
     Route: 065
     Dates: start: 20210112

REACTIONS (12)
  - Tachycardia [Unknown]
  - Pain in extremity [Unknown]
  - Hypoxia [Unknown]
  - Malaise [Unknown]
  - Pain [Unknown]
  - Blister [Unknown]
  - Rash [Not Recovered/Not Resolved]
  - Infection [Unknown]
  - Dyschezia [Not Recovered/Not Resolved]
  - Skin ulcer [Not Recovered/Not Resolved]
  - Pyrexia [Not Recovered/Not Resolved]
  - Decreased appetite [Unknown]

NARRATIVE: CASE EVENT DATE: 2021
